FAERS Safety Report 7021580-6 (Version None)
Quarter: 2010Q3

REPORT INFORMATION
  Report Type: 
  Country: None (occurrence: None)
  Receive Date: 20100928
  Receipt Date: 20100910
  Transmission Date: 20110219
  Serious: Yes (Hospitalization, Other)
  Sender: FDA-Public Use
  Company Number: JPI-P-012209

PATIENT
  Age: 33 Year
  Sex: Female
  Weight: 92.0802 kg

DRUGS (1)
  1. XYREM [Suspect]
     Indication: NARCOLEPSY
     Dosage: 4.5 GM (2.25 GM, 2 IN  1 D),ORAL
     Route: 048
     Dates: start: 20091201, end: 20100903

REACTIONS (7)
  - ABDOMINAL PAIN UPPER [None]
  - APPENDICITIS [None]
  - HEADACHE [None]
  - INITIAL INSOMNIA [None]
  - LOGORRHOEA [None]
  - NAUSEA [None]
  - SOMNOLENCE [None]
